FAERS Safety Report 9284613 (Version 1)
Quarter: 2013Q2

REPORT INFORMATION
  Report Type: Spontaneous
  Country: GB (occurrence: GB)
  Receive Date: 20130513
  Receipt Date: 20130513
  Transmission Date: 20140414
  Serious: Yes (Other)
  Sender: FDA-Public Use
  Company Number: GB-009507513-1302GBR012075

PATIENT
  Age: 63 Year
  Sex: Female

DRUGS (2)
  1. SAFLUTAN 15MCG.ML EYEDROPS SOLUTION, SINGLE DOSE CONTAINER [Suspect]
     Indication: GLAUCOMA
     Dosage: 1 GTT, QD
     Route: 047
     Dates: start: 201001
  2. TIMOPTOL-LA 0.25%W/V GEL-FORMING EYE DROPS SOLUTION [Concomitant]
     Indication: GLAUCOMA
     Dosage: 0.25% BID
     Dates: end: 2012

REACTIONS (3)
  - Periorbital fat atrophy [Unknown]
  - Ptosis repair [Unknown]
  - Eyelid ptosis [Unknown]
